FAERS Safety Report 10998064 (Version 2)
Quarter: 2015Q2

REPORT INFORMATION
  Report Type: Spontaneous
  Country: US (occurrence: US)
  Receive Date: 20150408
  Receipt Date: 20150408
  Transmission Date: 20150821
  Serious: Yes (Hospitalization, Other)
  Sender: FDA-Public Use
  Company Number: US-JNJFOC-20150309631

PATIENT
  Age: 67 Year
  Sex: Female

DRUGS (1)
  1. IMBRUVICA [Suspect]
     Active Substance: IBRUTINIB
     Indication: CHRONIC LYMPHOCYTIC LEUKAEMIA
     Route: 048
     Dates: start: 20150117, end: 20150302

REACTIONS (9)
  - Pleural effusion [Recovering/Resolving]
  - Hepatic enzyme increased [Unknown]
  - Vulvovaginal candidiasis [Unknown]
  - Malnutrition [Recovering/Resolving]
  - Performance status decreased [Recovering/Resolving]
  - Asthenia [Unknown]
  - Dyspnoea exertional [Unknown]
  - Acute kidney injury [Unknown]
  - Pneumonia bacterial [Recovering/Resolving]

NARRATIVE: CASE EVENT DATE: 2015
